FAERS Safety Report 6512672-6 (Version None)
Quarter: 2009Q4

REPORT INFORMATION
  Report Type: 
  Country: None (occurrence: None)
  Receive Date: 20091217
  Receipt Date: 20091130
  Transmission Date: 20100525
  Serious: Yes (Hospitalization)
  Sender: FDA-Public Use
  Company Number: 1-20862352

PATIENT
  Age: 78 Year
  Sex: Female

DRUGS (4)
  1. WARFARIN SODIUM [Suspect]
     Dosage: ORAL
     Route: 048
  2. ASPIRIN [Suspect]
     Dosage: ORAL
     Route: 048
  3. ENOXAPARIN SODIUM [Suspect]
     Dosage: 1 MG/KG, TWICE DAILY, SUBCUTANEOUS
     Route: 058
  4. STEROID INJECTION (UNSPECIFIED) [Suspect]
     Indication: BACK PAIN
     Dosage: EPIDURAL
     Route: 008

REACTIONS (4)
  - EXTRADURAL HAEMATOMA [None]
  - LUMBAR SPINAL STENOSIS [None]
  - SPINAL CLAUDICATION [None]
  - SPINAL CORD COMPRESSION [None]
